FAERS Safety Report 6688122-6 (Version None)
Quarter: 2010Q2

REPORT INFORMATION
  Report Type: 
  Country: None (occurrence: None)
  Receive Date: 20100420
  Receipt Date: 20100409
  Transmission Date: 20101027
  Serious: Yes (Hospitalization)
  Sender: FDA-Public Use
  Company Number: JP-PFIZER INC-2010034279

PATIENT
  Age: 65 Year
  Sex: Male
  Weight: 51 kg

DRUGS (19)
  1. SOLU-CORTEF [Suspect]
     Indication: PROPHYLAXIS
     Dosage: 100 MG/DAY, EVERY OTHER WEEK
     Route: 042
     Dates: start: 20091008, end: 20100315
  2. AVASTIN [Concomitant]
     Dosage: UNK
     Route: 042
     Dates: start: 20090219
  3. FLUOROURACIL/FOLINIC ACID/OXALIPLATIN [Concomitant]
     Dosage: UNK
  4. FLUOROURACIL [Concomitant]
     Dosage: UNK
     Route: 042
     Dates: start: 20090219
  5. OXALIPLATIN [Concomitant]
     Dosage: UNK
     Route: 042
     Dates: start: 20090219
  6. CALCIUM LEVOFOLINATE [Concomitant]
     Dosage: UNK
     Route: 042
     Dates: start: 20090219
  7. TAKEPRON [Concomitant]
     Dosage: UNK
     Route: 048
  8. MICARDIS [Concomitant]
     Dosage: UNK
     Route: 048
  9. ACECOL [Concomitant]
     Dosage: UNK
     Route: 048
  10. LASIX [Concomitant]
     Dosage: UNK
     Route: 048
  11. DOXAZOSIN MESYLATE [Concomitant]
     Dosage: UNK
     Route: 048
  12. NORVASC [Concomitant]
     Dosage: UNK
     Route: 048
  13. HALCION [Concomitant]
     Dosage: UNK
     Route: 048
  14. LENDORMIN [Concomitant]
     Dosage: UNK
     Route: 048
  15. ASTOMIN [Concomitant]
     Dosage: UNK
     Route: 048
  16. MUCOSOLVAN [Concomitant]
     Dosage: UNK
     Route: 048
  17. MUCODYNE [Concomitant]
     Dosage: UNK
     Route: 048
  18. BISOLVON [Concomitant]
     Dosage: UNK
     Route: 048
  19. NOVORAPID [Concomitant]
     Dosage: UNK
     Route: 030

REACTIONS (6)
  - ANAPHYLACTOID REACTION [None]
  - ASTHMA [None]
  - ERYTHEMA [None]
  - HEADACHE [None]
  - HYPOAESTHESIA ORAL [None]
  - PRURITUS [None]
